FAERS Safety Report 4449225-X (Version None)
Quarter: 2004Q3

REPORT INFORMATION
  Report Type: 
  Country: None (occurrence: None)
  Receive Date: 20040909
  Receipt Date: 20040825
  Transmission Date: 20050211
  Serious: Yes (Other)
  Sender: FDA-Public Use
  Company Number: USA040671089

PATIENT
  Age: 61 Year
  Sex: Female

DRUGS (6)
  1. FORTEO [Suspect]
     Dates: start: 20040101, end: 20040601
  2. SYNTHROID [Concomitant]
  3. SINEMET [Concomitant]
  4. NEXIUM [Concomitant]
  5. LIBRIUM [Concomitant]
  6. BEXTRA [Concomitant]

REACTIONS (3)
  - CORNEAL DEPOSITS [None]
  - CORNEAL DISORDER [None]
  - FEELING HOT AND COLD [None]
